FAERS Safety Report 12545370 (Version 2)
Quarter: 2016Q3

REPORT INFORMATION
  Report Type: Spontaneous
  Country: US (occurrence: US)
  Receive Date: 20160711
  Receipt Date: 20160803
  Transmission Date: 20161109
  Serious: Yes (Death, Hospitalization, Other)
  Sender: FDA-Public Use
  Company Number: US-SMITH AND NEPHEW, INC-2016SMT00566

PATIENT
  Age: 72 Year
  Sex: Female
  Weight: 61.22 kg

DRUGS (7)
  1. REGRANEX [Suspect]
     Active Substance: BECAPLERMIN
     Indication: DIABETIC FOOT
     Dosage: UNK, 1X/DAY
     Route: 061
     Dates: start: 20160415, end: 20160513
  2. ZOCOR [Concomitant]
     Active Substance: SIMVASTATIN
  3. LEVOTHYROXINE SODIUM. [Concomitant]
     Active Substance: LEVOTHYROXINE SODIUM
  4. PAROXETINE. [Concomitant]
     Active Substance: PAROXETINE
  5. UNSPECIFIED INSULIN [Concomitant]
     Active Substance: INSULIN NOS
  6. LISINOPRIL. [Concomitant]
     Active Substance: LISINOPRIL
  7. ASPIRIN. [Concomitant]
     Active Substance: ASPIRIN
     Dosage: 81 MG, UNK

REACTIONS (16)
  - Pyrexia [Unknown]
  - Pneumonia [Unknown]
  - Blindness [Unknown]
  - Orthopnoea [Unknown]
  - Acute respiratory failure [Unknown]
  - Dyspnoea [Unknown]
  - Nausea [Unknown]
  - Chronic obstructive pulmonary disease [Unknown]
  - Cardiac failure congestive [Unknown]
  - Tachycardia [Unknown]
  - Acute myocardial infarction [Fatal]
  - Bronchitis [Unknown]
  - Acute kidney injury [Unknown]
  - Lethargy [Unknown]
  - Fluid retention [Unknown]
  - Cough [Unknown]

NARRATIVE: CASE EVENT DATE: 201605
